FAERS Safety Report 9345235 (Version 1)
Quarter: 2013Q2

REPORT INFORMATION
  Report Type: Spontaneous
  Country: US (occurrence: US)
  Receive Date: 20130612
  Receipt Date: 20130612
  Transmission Date: 20140414
  Serious: Yes (Hospitalization)
  Sender: FDA-Public Use
  Company Number: US-MYLANLABS-2013S1012167

PATIENT
  Age: 55 Year
  Sex: Female
  Weight: 57.61 kg

DRUGS (2)
  1. LEVOTHYROXINE SODIUM TABLETS, USP [Suspect]
     Indication: HYPOTHYROIDISM
     Route: 048
     Dates: start: 201304, end: 201305
  2. LEVOTHYROXINE SODIUM TABLETS, USP [Suspect]
     Indication: HYPOTHYROIDISM
     Route: 048
     Dates: start: 201304, end: 201305

REACTIONS (5)
  - Chest pain [Recovered/Resolved]
  - Pain in jaw [Recovered/Resolved]
  - Back pain [Recovered/Resolved]
  - Malaise [Recovered/Resolved]
  - Headache [Recovered/Resolved]
